FAERS Safety Report 24286870 (Version 2)
Quarter: 2024Q3

REPORT INFORMATION
  Report Type: Spontaneous
  Country: GB (occurrence: GB)
  Receive Date: 20240905
  Receipt Date: 20240924
  Transmission Date: 20241017
  Serious: Yes (Death, Hospitalization, Other)
  Sender: Vantive US Healthcare
  Company Number: GB-VANTIVE-2024VAN019471

PATIENT
  Sex: Female

DRUGS (1)
  1. CALCIUM CHLORIDE\DEXTROSE\MAGNESIUM CHLORIDE\SODIUM CHLORIDE [Suspect]
     Active Substance: CALCIUM CHLORIDE\DEXTROSE\MAGNESIUM CHLORIDE\SODIUM CHLORIDE
     Route: 033

REACTIONS (5)
  - Clostridium difficile infection [Fatal]
  - Urinary tract infection [Fatal]
  - Peritonitis bacterial [Recovered/Resolved]
  - Respiratory disorder [Unknown]
  - Blood product transfusion dependent [Unknown]
